FAERS Safety Report 20522104 (Version 1)
Quarter: 2022Q1

REPORT INFORMATION
  Report Type: Spontaneous
  Country: US (occurrence: US)
  Receive Date: 20220226
  Receipt Date: 20220226
  Transmission Date: 20220423
  Serious: Yes (Other)
  Sender: FDA-Public Use
  Company Number: US-NOVARTISPH-NVSC2022US045026

PATIENT
  Age: 51 Year
  Sex: Female

DRUGS (3)
  1. RANITIDINE [Suspect]
     Active Substance: RANITIDINE
     Indication: Gastrooesophageal reflux disease
     Dosage: 150 MG,300 MG,,DAILY,
     Route: 048
     Dates: start: 200012, end: 201906
  2. RANITIDINE [Suspect]
     Active Substance: RANITIDINE
     Indication: Gastrooesophageal reflux disease
     Dosage: 150 MG,300 MG,,DAILY,
     Route: 048
     Dates: start: 200012, end: 201906
  3. RANITIDINE [Suspect]
     Active Substance: RANITIDINE
     Indication: Gastrooesophageal reflux disease
     Dosage: ,,,UNKNOWN AT THIS TIME,,DAILY,
     Route: 048
     Dates: start: 200012, end: 201906

REACTIONS (4)
  - Colorectal cancer [Unknown]
  - Leukaemia [Unknown]
  - Skin cancer [Unknown]
  - Incorrect dose administered [Unknown]

NARRATIVE: CASE EVENT DATE: 20190801
